FAERS Safety Report 8524748-2 (Version None)
Quarter: 2012Q3

REPORT INFORMATION
  Report Type: 
  Country: None (occurrence: None)
  Receive Date: 20120720
  Receipt Date: 20120710
  Transmission Date: 20120928
  Serious: Yes (Hospitalization, Other)
  Sender: FDA-Public Use
  Company Number: DE-CELGENEUS-062-50794-12022807

PATIENT
  Age: 72 Year
  Sex: Male
  Weight: 75.2 kg

DRUGS (8)
  1. VIVINOX [Concomitant]
     Indication: INSOMNIA
     Route: 041
  2. VIDAZA [Suspect]
  3. POLYETHYLENE GLYCOL [Concomitant]
     Route: 041
  4. VALERIAN [Concomitant]
     Route: 041
  5. OXYBUTYNIN [Concomitant]
     Route: 065
  6. FENISTIL [Concomitant]
     Indication: PRURITUS
     Route: 061
  7. VIDAZA [Suspect]
     Indication: MYELODYSPLASTIC SYNDROME
     Route: 058
     Dates: start: 20110401, end: 20120403
  8. WHOLE BLOOD [Concomitant]
     Route: 041

REACTIONS (2)
  - ORGANISING PNEUMONIA [None]
  - ALVEOLITIS ALLERGIC [None]
